FAERS Safety Report 7936853-X (Version None)
Quarter: 2011Q4

REPORT INFORMATION
  Report Type: 
  Country: None (occurrence: None)
  Receive Date: 20111123
  Receipt Date: 20111123
  Transmission Date: 20120403
  Serious: Yes (Other)
  Sender: FDA-Public Use
  Company Number: None

PATIENT
  Age: 62 Year
  Sex: Female
  Weight: 82.553 kg

DRUGS (1)
  1. LISINOPRIL [Suspect]
     Indication: BLOOD CHOLESTEROL
     Dosage: ONE IN THE MORNING
     Dates: start: 20110614, end: 20110914

REACTIONS (9)
  - DIZZINESS [None]
  - ABDOMINAL PAIN UPPER [None]
  - BLOOD PRESSURE INCREASED [None]
  - CONFUSIONAL STATE [None]
  - DIARRHOEA [None]
  - COUGH [None]
  - MUSCLE SPASMS [None]
  - DEHYDRATION [None]
  - MALAISE [None]
